FAERS Safety Report 7267699-6 (Version None)
Quarter: 2011Q1

REPORT INFORMATION
  Report Type: 
  Country: None (occurrence: None)
  Receive Date: 20110201
  Receipt Date: 20110127
  Transmission Date: 20110831
  Serious: Yes (Hospitalization)
  Sender: FDA-Public Use
  Company Number: SE-ROCHE-752338

PATIENT
  Sex: Female

DRUGS (8)
  1. OVESTERIN [Concomitant]
     Route: 067
  2. BETAPRED [Concomitant]
     Dosage: BETAPRED TABL 0,5 MG
     Route: 048
  3. AVASTIN [Suspect]
     Indication: BRAIN NEOPLASM MALIGNANT
     Dosage: DRUG NAME: AVASTIN CONC FOR SOL FOR INF 25 MG/ML
     Route: 042
     Dates: start: 20101204, end: 20101204
  4. TEGRETOL [Concomitant]
     Dosage: TEGRETOL RETARD PROLONGEDRELEASE TABLET 200 MG
     Route: 048
  5. SYMBICORT [Concomitant]
     Dosage: SYMBICORT FORTE TURBUHALER
  6. OMEPRAZOLE [Concomitant]
  7. TEMODAL [Suspect]
     Dosage: 5 DAYS
     Route: 065
  8. KEPPRA [Concomitant]
     Dosage: KEPPRA FC TABL 500 MG
     Route: 048

REACTIONS (2)
  - GRAND MAL CONVULSION [None]
  - CEREBRAL HAEMORRHAGE [None]
